FAERS Safety Report 15463044 (Version 1)
Quarter: 2018Q4

REPORT INFORMATION
  Report Type: Spontaneous
  Country: AT (occurrence: AT)
  Receive Date: 20181004
  Receipt Date: 20181004
  Transmission Date: 20190204
  Serious: Yes (Hospitalization, Other)
  Sender: FDA-Public Use
  Company Number: AT-ACCORD-073004

PATIENT
  Sex: Female

DRUGS (3)
  1. CARBOPLATIN. [Suspect]
     Active Substance: CARBOPLATIN
     Indication: TRANSITIONAL CELL CARCINOMA
     Dates: start: 201802, end: 201804
  2. CISPLATIN. [Suspect]
     Active Substance: CISPLATIN
     Indication: TRANSITIONAL CELL CARCINOMA
     Dosage: 7 CYCLES
     Dates: start: 201605, end: 201607
  3. GEMCITABINE/GEMCITABINE HYDROCHLORIDE [Suspect]
     Active Substance: GEMCITABINE\GEMCITABINE HYDROCHLORIDE
     Indication: TRANSITIONAL CELL CARCINOMA
     Dosage: 7 CYCLES, CYCLE 4 DOSE REDUCED
     Dates: start: 201605, end: 201607

REACTIONS (6)
  - Radiation proctitis [Unknown]
  - Thrombocytopenia [Unknown]
  - Pancytopenia [Recovered/Resolved]
  - Anal haemorrhage [Unknown]
  - Diverticulum intestinal [Unknown]
  - Off label use [Unknown]

NARRATIVE: CASE EVENT DATE: 201607
